FAERS Safety Report 14195593 (Version 1)
Quarter: 2017Q4

REPORT INFORMATION
  Report Type: Spontaneous
  Country: US (occurrence: US)
  Receive Date: 20171116
  Receipt Date: 20171116
  Transmission Date: 20180321
  Serious: No
  Sender: FDA-Public Use
  Company Number: US-COLLEGIUM PHARMACEUTICAL, INC.-2017CGM00091

PATIENT
  Age: 79 Year
  Sex: Female
  Weight: 92.97 kg

DRUGS (42)
  1. ALLOPURINOL. [Concomitant]
     Active Substance: ALLOPURINOL
  2. PROVENTIL [Concomitant]
     Active Substance: ALBUTEROL
  3. VITAMIN C [Concomitant]
     Active Substance: ASCORBIC ACID
  4. TAZTIA XT [Concomitant]
     Active Substance: DILTIAZEM HYDROCHLORIDE
  5. VENTOLIN [Concomitant]
     Active Substance: ALBUTEROL SULFATE
  6. XTAMPZA ER [Suspect]
     Active Substance: OXYCODONE
     Indication: SPONDYLOLISTHESIS
     Dosage: 27 MG, 2X/DAY
     Dates: start: 20170320, end: 20170321
  7. FLOVENT [Concomitant]
     Active Substance: FLUTICASONE PROPIONATE
  8. SUPER-C [Concomitant]
  9. VITAMIN D [Concomitant]
     Active Substance: CHOLECALCIFEROL
  10. ZINC. [Concomitant]
     Active Substance: ZINC
  11. MAGNESIUM [Concomitant]
     Active Substance: MAGNESIUM
  12. MANGOSTEEN [Concomitant]
  13. UNSPECIFIED PROBIOTIC [Concomitant]
  14. BISOPROLOL [Concomitant]
     Active Substance: BISOPROLOL
  15. CRANBERRY. [Concomitant]
     Active Substance: CRANBERRY
  16. BUMETANIDE. [Concomitant]
     Active Substance: BUMETANIDE
  17. FEXOFENADINE [Concomitant]
     Active Substance: FEXOFENADINE\FEXOFENADINE HYDROCHLORIDE
  18. XOPENEX [Concomitant]
     Active Substance: LEVALBUTEROL HYDROCHLORIDE
  19. HYDROXYZINE [Concomitant]
     Active Substance: HYDROXYZINE HYDROCHLORIDE
  20. POTASSIUM [Concomitant]
     Active Substance: POTASSIUM
  21. LOMOTIL [Concomitant]
     Active Substance: ATROPINE SULFATE\DIPHENOXYLATE HYDROCHLORIDE
  22. METAZOLONE [Concomitant]
  23. XTAMPZA ER [Suspect]
     Active Substance: OXYCODONE
     Indication: ARTHRALGIA
  24. LEVOXYL [Concomitant]
     Active Substance: LEVOTHYROXINE SODIUM
  25. SINGULAIR [Concomitant]
     Active Substance: MONTELUKAST SODIUM
  26. VITAMIN E [Concomitant]
     Active Substance: .ALPHA.-TOCOPHEROL
  27. RED YEAST RICE [Concomitant]
     Active Substance: DIETARY SUPPLEMENT
  28. DEXILANT [Concomitant]
     Active Substance: DEXLANSOPRAZOLE
  29. FERROUS SULFATE. [Concomitant]
     Active Substance: FERROUS SULFATE
  30. OXYCODONE IR [Concomitant]
     Active Substance: OXYCODONE
  31. PREVACID [Concomitant]
     Active Substance: LANSOPRAZOLE
  32. VITAMIN B12 [Concomitant]
     Active Substance: CYANOCOBALAMIN
  33. VITAMIN B6 [Concomitant]
     Active Substance: PYRIDOXINE HYDROCHLORIDE
  34. VIBERZI [Concomitant]
     Active Substance: ELUXADOLINE
  35. NUCYNTA [Concomitant]
     Active Substance: TAPENTADOL HYDROCHLORIDE
     Dosage: 50 MG, 2X/DAY AS NEEDED
  36. IMODIUM [Concomitant]
     Active Substance: LOPERAMIDE HYDROCHLORIDE
  37. FOLIC ACID. [Concomitant]
     Active Substance: FOLIC ACID
  38. DIPHENOXYLATE [Concomitant]
     Active Substance: DIPHENOXYLATE
  39. GLYCERYL TRINITRATE [Concomitant]
     Active Substance: NITROGLYCERIN
     Route: 062
  40. XTAMPZA ER [Suspect]
     Active Substance: OXYCODONE
     Indication: BACK PAIN
  41. WELCHOL [Concomitant]
     Active Substance: COLESEVELAM HYDROCHLORIDE
  42. LULLABY [Concomitant]

REACTIONS (1)
  - Pruritus [Recovered/Resolved]

NARRATIVE: CASE EVENT DATE: 20170321
